FAERS Safety Report 16667305 (Version 1)
Quarter: 2019Q3

REPORT INFORMATION
  Report Type: Spontaneous
  Country: JP (occurrence: JP)
  Receive Date: 20190805
  Receipt Date: 20190805
  Transmission Date: 20191004
  Serious: Yes (Death)
  Sender: FDA-Public Use
  Company Number: JP-ACTELION-A-CH2019-193705

PATIENT
  Age: 82 Year
  Sex: Female

DRUGS (1)
  1. OPSUMIT [Suspect]
     Active Substance: MACITENTAN
     Indication: PULMONARY ARTERIAL HYPERTENSION
     Dosage: 10 MG, QD
     Route: 048
     Dates: start: 201907, end: 20190718

REACTIONS (5)
  - Haemodynamic instability [Fatal]
  - Pulmonary embolism [Fatal]
  - Concomitant disease aggravated [Fatal]
  - Hypoxia [Fatal]
  - Flank pain [Fatal]

NARRATIVE: CASE EVENT DATE: 20190718
